FAERS Safety Report 6843870-X (Version None)
Quarter: 2010Q3

REPORT INFORMATION
  Report Type: 
  Country: None (occurrence: None)
  Receive Date: 20100715
  Receipt Date: 20100708
  Transmission Date: 20110219
  Serious: Yes (Hospitalization)
  Sender: FDA-Public Use
  Company Number: PHHY2010DE33538

PATIENT
  Age: 13 Year
  Sex: Male

DRUGS (2)
  1. RITALIN LA [Suspect]
     Indication: ATTENTION DEFICIT/HYPERACTIVITY DISORDER
     Dosage: 20 MG DAILY
     Dates: start: 20080229
  2. RITALIN LA [Suspect]
     Dosage: 30 MG DAILY
     Dates: start: 20090922

REACTIONS (1)
  - PHARYNGEAL DISORDER [None]
